FAERS Safety Report 15600011 (Version 1)
Quarter: 2018Q4

REPORT INFORMATION
  Report Type: Spontaneous
  Country: US (occurrence: US)
  Receive Date: 20181108
  Receipt Date: 20181108
  Transmission Date: 20190205
  Serious: No
  Sender: FDA-Public Use
  Company Number: US-009507513-1810USA012298

PATIENT
  Age: 78 Year
  Sex: Male

DRUGS (1)
  1. ASMANEX [Suspect]
     Active Substance: MOMETASONE FUROATE
     Indication: ASTHMA
     Dosage: 220 MCG, QD
     Route: 055

REACTIONS (4)
  - Feeling abnormal [Recovered/Resolved]
  - Intraocular pressure increased [Unknown]
  - Pulmonary function test decreased [Unknown]
  - Product prescribing error [Unknown]
